FAERS Safety Report 4511344-7 (Version None)
Quarter: 2004Q4

REPORT INFORMATION
  Report Type: 
  Country: None (occurrence: None)
  Receive Date: 20041123
  Receipt Date: 20041123
  Transmission Date: 20050328
  Serious: No
  Sender: FDA-Public Use
  Company Number: None

PATIENT
  Age: 53 Year
  Sex: Female
  Weight: 104.3273 kg

DRUGS (7)
  1. CORICIDIN D (CHLORPHENIRAMINE/PHENYLPROPANOLAMINE/AS TABLETS [Suspect]
     Indication: NASOPHARYNGITIS
     Dosage: ONE QD* ORAL
     Route: 048
     Dates: start: 19990501, end: 19990518
  2. DEXATRIM [Concomitant]
  3. MOTRIN [Concomitant]
  4. ELAVIL [Concomitant]
  5. LODINE [Concomitant]
  6. POTASSIUM SUPPLEMENT [Concomitant]
  7. CHOLESTEROL LOWERING AGENT [Concomitant]

REACTIONS (2)
  - HEADACHE [None]
  - SUBARACHNOID HAEMORRHAGE [None]
